FAERS Safety Report 9789498 (Version 3)
Quarter: 2014Q1

REPORT INFORMATION
  Report Type: Spontaneous
  Country: FR (occurrence: FR)
  Receive Date: 20131231
  Receipt Date: 20140109
  Transmission Date: 20141002
  Serious: Yes (Hospitalization)
  Sender: FDA-Public Use
  Company Number: FR-BIOGENIDEC-2013BI039356

PATIENT
  Age: 54 Year
  Sex: Female
  Weight: 50 kg

DRUGS (2)
  1. AVONEX [Suspect]
     Indication: NEUROMYELITIS OPTICA
     Route: 030
     Dates: start: 20130202, end: 20130222
  2. SOLUMEDROL [Concomitant]

REACTIONS (2)
  - Myocarditis [Recovered/Resolved]
  - Polymyositis [Recovered/Resolved]
